FAERS Safety Report 5319836-8 (Version None)
Quarter: 2007Q2

REPORT INFORMATION
  Report Type: 
  Country: None (occurrence: None)
  Receive Date: 20070509
  Receipt Date: 20070504
  Transmission Date: 20071010
  Serious: Yes (Death, Other)
  Sender: FDA-Public Use
  Company Number: PHRM2007FR01214

PATIENT
  Age: 81 Year
  Sex: Male

DRUGS (6)
  1. ZOMETA [Suspect]
     Indication: METASTASES TO BONE
     Dosage: 4 MG, QMO
     Route: 042
     Dates: start: 20070322, end: 20070322
  2. DURAGESIC-100 [Suspect]
  3. PRIMPERAN INJ [Concomitant]
  4. TAREG [Concomitant]
  5. TIAPRIDAL [Concomitant]
  6. CTC [Concomitant]

REACTIONS (2)
  - COMA [None]
  - VOMITING [None]
